FAERS Safety Report 5305527-6 (Version None)
Quarter: 2007Q2

REPORT INFORMATION
  Report Type: 
  Country: None (occurrence: None)
  Receive Date: 20070424
  Receipt Date: 20060818
  Transmission Date: 20071010
  Serious: No
  Sender: FDA-Public Use
  Company Number: 2005SP004379

PATIENT
  Age: 51 Year
  Sex: Female

DRUGS (4)
  1. FLOVENT [Suspect]
     Indication: DRUG USE FOR UNKNOWN INDICATION
  2. XOPENEX [Suspect]
     Indication: ASTHMA
     Dosage: .63MG TWICE PER DAY
  3. PREDNISONE TAB [Suspect]
     Indication: DRUG USE FOR UNKNOWN INDICATION
     Dates: end: 20051217
  4. PROVENTIL-HFA [Suspect]
     Indication: DRUG USE FOR UNKNOWN INDICATION
     Route: 055

REACTIONS (3)
  - HEADACHE [None]
  - HEART RATE INCREASED [None]
  - THIRST [None]
